FAERS Safety Report 16409401 (Version 1)
Quarter: 2019Q2

REPORT INFORMATION
  Report Type: Spontaneous
  Country: US (occurrence: US)
  Receive Date: 20190610
  Receipt Date: 20190610
  Transmission Date: 20190711
  Serious: Yes (Hospitalization, Other)
  Sender: FDA-Public Use
  Company Number: US-009507513-1906USA001307

PATIENT
  Sex: Male

DRUGS (1)
  1. KEYTRUDA [Suspect]
     Active Substance: PEMBROLIZUMAB
     Indication: LUNG NEOPLASM MALIGNANT
     Dosage: 200 MG EVERY 3 WEEKS
     Dates: start: 201804, end: 20190520

REACTIONS (3)
  - Rash [Recovered/Resolved]
  - Drug ineffective [Not Recovered/Not Resolved]
  - Adrenal gland cancer [Not Recovered/Not Resolved]
